FAERS Safety Report 22056023 (Version 1)
Quarter: 2023Q1

REPORT INFORMATION
  Report Type: Report from Study
  Country: US (occurrence: US)
  Receive Date: 20230302
  Receipt Date: 20230302
  Transmission Date: 20230418
  Serious: Yes (Hospitalization, Other)
  Sender: FDA-Public Use
  Company Number: US-BAUSCH-BL-2023-003371

PATIENT
  Age: 82 Year
  Sex: Male

DRUGS (2)
  1. XIFAXAN [Suspect]
     Active Substance: RIFAXIMIN
     Indication: Hepatic encephalopathy
     Route: 048
     Dates: start: 202211
  2. LACTULOSE [Concomitant]
     Active Substance: LACTULOSE
     Indication: Product used for unknown indication

REACTIONS (4)
  - Hepatic encephalopathy [Unknown]
  - Symptom recurrence [Unknown]
  - Hospitalisation [Unknown]
  - Inability to afford medication [Unknown]

NARRATIVE: CASE EVENT DATE: 20221101
